FAERS Safety Report 20290088 (Version 1)
Quarter: 2022Q1

REPORT INFORMATION
  Report Type: Spontaneous
  Country: US (occurrence: None)
  Receive Date: 20220103
  Receipt Date: 20220103
  Transmission Date: 20220423
  Serious: Yes (Other)
  Sender: FDA-Public Use
  Company Number: None

PATIENT
  Age: 45 Year
  Sex: Female
  Weight: 105.75 kg

DRUGS (9)
  1. SENSODYNE PRONAMEL MINERAL BOOST WHITENING ACTION [Suspect]
     Active Substance: POTASSIUM NITRATE\SODIUM FLUORIDE
     Indication: Gingivitis
     Dosage: OTHER QUANTITY : 1 1 INCH TWICE A DAY;?FREQUENCY : TWICE A DAY;?OTHER ROUTE : APPLIED IN MOUTH;?
     Route: 050
     Dates: start: 20211115, end: 20220103
  2. VENTOLIN [Concomitant]
     Active Substance: ALBUTEROL SULFATE
  3. CLONIDINE [Concomitant]
     Active Substance: CLONIDINE
  4. LEVOTHYROXINE [Concomitant]
     Active Substance: LEVOTHYROXINE
  5. LOSARTAN [Concomitant]
     Active Substance: LOSARTAN
  6. LORAZEPAM [Concomitant]
     Active Substance: LORAZEPAM
  7. BENADRYL [Concomitant]
     Active Substance: DIPHENHYDRAMINE HYDROCHLORIDE
  8. ADVIL [Concomitant]
     Active Substance: IBUPROFEN
  9. ZYRTEC [Concomitant]
     Active Substance: CETIRIZINE HYDROCHLORIDE

REACTIONS (12)
  - Asthma [None]
  - Cough [None]
  - Body temperature increased [None]
  - Heart rate increased [None]
  - Hypersensitivity [None]
  - Food allergy [None]
  - Throat tightness [None]
  - Abdominal discomfort [None]
  - Wheezing [None]
  - Feeling abnormal [None]
  - Palpitations [None]
  - Swollen tongue [None]

NARRATIVE: CASE EVENT DATE: 20220103
